FAERS Safety Report 5924335-6 (Version None)
Quarter: 2008Q4

REPORT INFORMATION
  Report Type: 
  Country: None (occurrence: None)
  Receive Date: 20081020
  Receipt Date: 20081007
  Transmission Date: 20090506
  Serious: Yes (Other)
  Sender: FDA-Public Use
  Company Number: AU-WATSON-2008-06015

PATIENT
  Age: 61 Year
  Sex: Male

DRUGS (5)
  1. MIRTAZAPINE (WATSON LABORATORIES) [Suspect]
     Indication: FLAT AFFECT
     Dosage: 15 MG, DAILY X 7 DAYS
     Route: 048
     Dates: start: 20080101
  2. METFORMIN HYDROCHLORIDE [Concomitant]
     Indication: DRUG USE FOR UNKNOWN INDICATION
     Dosage: 500 MG, BID
     Route: 048
  3. GLICLAZIDE [Concomitant]
     Indication: DRUG USE FOR UNKNOWN INDICATION
     Dosage: 40 MG, BID
  4. IRBESARTAN [Concomitant]
     Indication: DRUG USE FOR UNKNOWN INDICATION
     Dosage: 150 MG, DAILY
  5. HYDROCHLOROTHIAZIDE [Concomitant]
     Indication: DRUG USE FOR UNKNOWN INDICATION
     Dosage: 12.5 MG, DAILY

REACTIONS (1)
  - HYPONATRAEMIA [None]
